FAERS Safety Report 7560508-7 (Version None)
Quarter: 2011Q2

REPORT INFORMATION
  Report Type: 
  Country: None (occurrence: None)
  Receive Date: 20110621
  Receipt Date: 20110615
  Transmission Date: 20111010
  Serious: Yes (Hospitalization)
  Sender: FDA-Public Use
  Company Number: DE-MERCK-1010DEU00054

PATIENT
  Age: 49 Year
  Sex: Male

DRUGS (1)
  1. JANUMET [Suspect]
     Indication: DIABETES MELLITUS
     Route: 048
     Dates: start: 20100301

REACTIONS (5)
  - HIPPOCAMPAL SCLEROSIS [None]
  - ADVERSE EVENT [None]
  - HYPERTRIGLYCERIDAEMIA [None]
  - TEMPORAL LOBE EPILEPSY [None]
  - BLOOD GLUCOSE INCREASED [None]
